FAERS Safety Report 7119004-3 (Version None)
Quarter: 2010Q4

REPORT INFORMATION
  Report Type: 
  Country: None (occurrence: None)
  Receive Date: 20101123
  Receipt Date: 20101115
  Transmission Date: 20110411
  Serious: Yes (Hospitalization, Congenital Anomaly)
  Sender: FDA-Public Use
  Company Number: A0874649A

PATIENT
  Sex: Male

DRUGS (5)
  1. PAXIL [Suspect]
  2. LORTAB [Concomitant]
  3. PHENERGAN [Concomitant]
  4. VIBRA-TABS [Concomitant]
  5. AZITHROMYCIN [Concomitant]
     Dates: start: 20010411

REACTIONS (3)
  - CRANIOSYNOSTOSIS [None]
  - DRUG EXPOSURE DURING PREGNANCY [None]
  - SCAPHOCEPHALY [None]
